FAERS Safety Report 17221835 (Version 1)
Quarter: 2020Q1

REPORT INFORMATION
  Report Type: Spontaneous
  Country: AU (occurrence: AU)
  Receive Date: 20200101
  Receipt Date: 20200101
  Transmission Date: 20200409
  Serious: Yes (Other)
  Sender: FDA-Public Use
  Company Number: AU-ROCHE-2491762

PATIENT
  Sex: Female
  Weight: 77 kg

DRUGS (17)
  1. DOXORUBICIN [Suspect]
     Active Substance: DOXORUBICIN
     Indication: DIFFUSE LARGE B-CELL LYMPHOMA
     Dosage: X 4
     Route: 065
  2. VINCRISTINE [Suspect]
     Active Substance: VINCRISTINE
     Indication: DIFFUSE LARGE B-CELL LYMPHOMA
     Dosage: X 4
     Route: 065
  3. VINCRISTINE [Suspect]
     Active Substance: VINCRISTINE
     Dosage: X 4
     Route: 065
     Dates: start: 20161010, end: 20170116
  4. PREDNISOLONE. [Suspect]
     Active Substance: PREDNISOLONE
     Indication: DIFFUSE LARGE B-CELL LYMPHOMA
     Dosage: X 4
     Route: 065
  5. METHYLPREDNISOLONE. [Suspect]
     Active Substance: METHYLPREDNISOLONE
     Indication: DIFFUSE LARGE B-CELL LYMPHOMA
     Dosage: X 5
     Route: 065
     Dates: start: 20150323, end: 20150828
  6. RITUXIMAB. [Suspect]
     Active Substance: RITUXIMAB
     Indication: DIFFUSE LARGE B-CELL LYMPHOMA
     Dosage: X 4
     Route: 041
     Dates: start: 20161010, end: 20170116
  7. RITUXIMAB. [Suspect]
     Active Substance: RITUXIMAB
     Dosage: X 4
     Route: 041
  8. CYTARABINE. [Suspect]
     Active Substance: CYTARABINE
     Indication: DIFFUSE LARGE B-CELL LYMPHOMA
     Dosage: X 2
     Route: 065
  9. ETOPOSIDE. [Suspect]
     Active Substance: ETOPOSIDE
     Indication: DIFFUSE LARGE B-CELL LYMPHOMA
     Dosage: X 5
     Route: 065
     Dates: start: 20150323, end: 20150828
  10. FLUDARABINE [Suspect]
     Active Substance: FLUDARABINE PHOSPHATE
     Indication: DIFFUSE LARGE B-CELL LYMPHOMA
     Route: 065
  11. RITUXIMAB. [Suspect]
     Active Substance: RITUXIMAB
     Dosage: X 2
     Route: 041
  12. CISPLATIN. [Suspect]
     Active Substance: CISPLATIN
     Dosage: X 5
     Route: 065
     Dates: start: 20150323, end: 20150828
  13. DEXAMETHASONE. [Suspect]
     Active Substance: DEXAMETHASONE
     Indication: DIFFUSE LARGE B-CELL LYMPHOMA
     Dosage: X 2
     Route: 065
  14. CISPLATIN. [Suspect]
     Active Substance: CISPLATIN
     Indication: DIFFUSE LARGE B-CELL LYMPHOMA
     Dosage: X 2
     Route: 065
  15. IDELALISIB [Suspect]
     Active Substance: IDELALISIB
     Indication: DIFFUSE LARGE B-CELL LYMPHOMA
     Route: 065
     Dates: start: 20170406, end: 201803
  16. CYCLOPHOSPHAMIDE. [Suspect]
     Active Substance: CYCLOPHOSPHAMIDE
     Indication: DIFFUSE LARGE B-CELL LYMPHOMA
     Dosage: X 4
     Route: 065
  17. CYTARABINE. [Suspect]
     Active Substance: CYTARABINE
     Dosage: X 5
     Route: 065
     Dates: start: 20150323, end: 20150828

REACTIONS (2)
  - Pancytopenia [Unknown]
  - Gastrointestinal toxicity [Unknown]
